FAERS Safety Report 20168683 (Version 1)
Quarter: 2021Q4

REPORT INFORMATION
  Report Type: Report from Study
  Country: US (occurrence: US)
  Receive Date: 20211210
  Receipt Date: 20211210
  Transmission Date: 20220303
  Serious: Yes (Hospitalization)
  Sender: FDA-Public Use
  Company Number: US-ABBVIE-21K-163-4186873-00

PATIENT
  Sex: Female
  Weight: 45.400 kg

DRUGS (3)
  1. DUOPA [Suspect]
     Active Substance: CARBIDOPA\LEVODOPA
     Indication: Product used for unknown indication
     Dosage: MD 9M1 - CD 2.6M1/HR - ED 2ML
     Route: 050
     Dates: start: 20191230, end: 2021
  2. DUOPA [Suspect]
     Active Substance: CARBIDOPA\LEVODOPA
     Dosage: MD 9M1 - CD 2.6M1/HR - ED 2ML
     Route: 050
     Dates: start: 2021
  3. CLOZAPINE [Suspect]
     Active Substance: CLOZAPINE
     Indication: Product used for unknown indication
     Route: 065

REACTIONS (4)
  - Abnormal behaviour [Not Recovered/Not Resolved]
  - Weight decreased [Not Recovered/Not Resolved]
  - Balance disorder [Not Recovered/Not Resolved]
  - Stereotypy [Not Recovered/Not Resolved]

NARRATIVE: CASE EVENT DATE: 20210101
